FAERS Safety Report 8758858 (Version 1)
Quarter: 2012Q4

REPORT INFORMATION
  Report Type: 
  Country: MX (occurrence: MX)
  Receive Date: 20120829
  Receipt Date: 20120829
  Transmission Date: 20130627
  Serious: Yes (Other)
  Sender: FDA-Public Use
  Company Number: PHHY2012MX073802

PATIENT
  Age: 85 Year
  Sex: Female

DRUGS (6)
  1. EXFORGE HCT [Suspect]
     Indication: HYPERTENSION
     Dosage: 1 DF (160 mg vals, 5 mg amlo and 12.5 mg hydro), daily
  2. EXFORGE HCT [Suspect]
     Dosage: 0.5 DF (160 mg vals, 5 mg amlo and 12.5 mg hydro), UNK
  3. ASPIRINA [Concomitant]
     Dosage: 1 DF daily
     Dates: start: 2006
  4. NIMOTOP [Concomitant]
     Dosage: 1 DF daily
  5. TAFIROL [Concomitant]
     Dosage: 2 DF, UNK
  6. MELOXICAM [Concomitant]
     Dosage: 1 DF, UNK

REACTIONS (5)
  - Fall [Not Recovered/Not Resolved]
  - Pain in extremity [Not Recovered/Not Resolved]
  - Cardiomegaly [Not Recovered/Not Resolved]
  - Headache [Not Recovered/Not Resolved]
  - Blood pressure abnormal [None]
